FAERS Safety Report 14838497 (Version 5)
Quarter: 2018Q4

REPORT INFORMATION
  Report Type: Report from Study
  Country: KR (occurrence: KR)
  Receive Date: 20180502
  Receipt Date: 20181005
  Transmission Date: 20190204
  Serious: Yes (Hospitalization)
  Sender: FDA-Public Use
  Company Number: KR-EISAI MEDICAL RESEARCH-EC-2018-039383

PATIENT
  Age: 61 Year
  Sex: Female
  Weight: 49.3 kg

DRUGS (25)
  1. SYNTHROID [Concomitant]
     Active Substance: LEVOTHYROXINE SODIUM
  2. CALCIUM CARBONATE. [Concomitant]
     Active Substance: CALCIUM CARBONATE
  3. OLMETEC PLUS [Concomitant]
     Active Substance: HYDROCHLOROTHIAZIDE\OLMESARTAN MEDOXOMIL
  4. LENVATINIB [Suspect]
     Active Substance: LENVATINIB
     Dosage: BLINDED DOSAGE
     Route: 048
     Dates: start: 2018, end: 20180817
  5. IR CODON [Concomitant]
     Active Substance: OXYCODONE HYDROCHLORIDE
  6. NEBIVOLOL. [Concomitant]
     Active Substance: NEBIVOLOL
  7. PHAZYME [Concomitant]
     Active Substance: DIMETHICONE 410
  8. AMLODIPINE [Concomitant]
     Active Substance: AMLODIPINE BESYLATE
  9. LENVATINIB [Suspect]
     Active Substance: LENVATINIB
     Indication: PAPILLARY THYROID CANCER
     Dosage: BLINDED DOSAGE
     Route: 048
     Dates: start: 20170901, end: 20180427
  10. OPTIDERM [Concomitant]
  11. MEGACE [Concomitant]
     Active Substance: MEGESTROL ACETATE
  12. ENCOVER [Concomitant]
  13. CLARIC [Concomitant]
  14. AMOXICILLIN. [Concomitant]
     Active Substance: AMOXICILLIN
  15. FOSAMAX PLUS D [Concomitant]
     Active Substance: ALENDRONATE SODIUM\CHOLECALCIFEROL
  16. ULTRACET [Concomitant]
     Active Substance: ACETAMINOPHEN\TRAMADOL HYDROCHLORIDE
  17. ROSUVAMIBE [Concomitant]
  18. DICHLOZID [Concomitant]
  19. RAMEZOL [Concomitant]
  20. DETHASONE [Concomitant]
  21. ANTIS GARGLE [Concomitant]
  22. LENVATINIB [Suspect]
     Active Substance: LENVATINIB
     Dosage: BLINDED DOSAGE
     Route: 048
     Dates: start: 20180822
  23. HEXAMEDIN [Concomitant]
  24. SEVIKAR [Concomitant]
     Active Substance: AMLODIPINE BESYLATE\OLMESARTAN MEDOXOMIL
  25. SMECTA [Concomitant]
     Active Substance: MONTMORILLONITE

REACTIONS (2)
  - Hepatitis toxic [Recovered/Resolved]
  - Cholecystitis [Recovered/Resolved]

NARRATIVE: CASE EVENT DATE: 20180428
